FAERS Safety Report 5494557-X (Version None)
Quarter: 2007Q4

REPORT INFORMATION
  Report Type: 
  Country: None (occurrence: None)
  Receive Date: 20071022
  Receipt Date: 20071005
  Transmission Date: 20080405
  Serious: Yes (Hospitalization, Other)
  Sender: FDA-Public Use
  Company Number: CTI_00925_2007

PATIENT
  Sex: Male

DRUGS (1)
  1. ZYFLO [Suspect]
     Indication: DRUG USE FOR UNKNOWN INDICATION
     Dosage: (DF)
     Dates: start: 20071001, end: 20071001

REACTIONS (2)
  - CLOSTRIDIAL INFECTION [None]
  - WHITE BLOOD CELL COUNT DECREASED [None]
